FAERS Safety Report 9914113 (Version 1)
Quarter: 2014Q1

REPORT INFORMATION
  Report Type: Spontaneous
  Country: US (occurrence: None)
  Receive Date: 20140219
  Receipt Date: 20140219
  Transmission Date: 20141002
  Serious: No
  Sender: FDA-Public Use
  Company Number: None

PATIENT
  Age: 15 Year
  Sex: Male
  Weight: 79.38 kg

DRUGS (1)
  1. METAMUCIL /00029101/ [Suspect]
     Indication: WEIGHT INCREASED
     Dosage: 2 TEASPOONS POWDER  ONCE DAILY  MIXED INTO DRINK

REACTIONS (5)
  - Cough [None]
  - Migraine [None]
  - Chills [None]
  - Arthralgia [None]
  - Asthenia [None]
